FAERS Safety Report 14213824 (Version 3)
Quarter: 2018Q1

REPORT INFORMATION
  Report Type: Spontaneous
  Country: US (occurrence: US)
  Receive Date: 20171122
  Receipt Date: 20180117
  Transmission Date: 20180508
  Serious: Yes (Hospitalization, Other)
  Sender: FDA-Public Use
  Company Number: US-SAOL THERAPEUTICS-2017SAO01813

PATIENT
  Age: 66 Year
  Sex: Male
  Weight: 81.63 kg

DRUGS (4)
  1. MARIJUANA [Concomitant]
     Active Substance: CANNABIS SATIVA SUBSP. INDICA TOP
  2. BACLOFEN. [Suspect]
     Active Substance: BACLOFEN
     Indication: SPINAL PAIN
     Route: 037
  3. HYDROMORPHONE [Suspect]
     Active Substance: HYDROMORPHONE
     Dosage: 9 ?G, UNK
     Route: 037
  4. MORPHINE [Suspect]
     Active Substance: MORPHINE
     Route: 037

REACTIONS (20)
  - Organ failure [Unknown]
  - Stress cardiomyopathy [Unknown]
  - Myocardial infarction [Unknown]
  - Seizure [Unknown]
  - Confusional state [Recovering/Resolving]
  - Infection [Unknown]
  - Respiration abnormal [Unknown]
  - Incoherent [Unknown]
  - Off label use [Unknown]
  - Fatigue [Unknown]
  - Arterial occlusive disease [Unknown]
  - Acute pulmonary oedema [Unknown]
  - Cerebrovascular accident [Unknown]
  - Restlessness [Unknown]
  - Pain [Unknown]
  - Unresponsive to stimuli [Unknown]
  - Amnesia [Unknown]
  - Loss of consciousness [Unknown]
  - Left ventricular failure [Unknown]
  - Septic shock [Recovered/Resolved]

NARRATIVE: CASE EVENT DATE: 20170125
